FAERS Safety Report 25178294 (Version 1)
Quarter: 2025Q2

REPORT INFORMATION
  Report Type: Spontaneous
  Country: DE (occurrence: DE)
  Receive Date: 20250409
  Receipt Date: 20250409
  Transmission Date: 20250717
  Serious: Yes (Other)
  Sender: AMGEN
  Company Number: DE-AMGEN-DEUSP2025066935

PATIENT
  Sex: Male

DRUGS (1)
  1. PROLIA [Suspect]
     Active Substance: DENOSUMAB
     Indication: Osteoporosis
     Route: 065

REACTIONS (4)
  - Transitional cell carcinoma metastatic [Unknown]
  - Blood parathyroid hormone increased [Unknown]
  - Hypocalcaemia [Unknown]
  - Hypophosphataemia [Unknown]
